FAERS Safety Report 14689507 (Version 1)
Quarter: 2018Q1

REPORT INFORMATION
  Report Type: Spontaneous
  Country: GB (occurrence: GB)
  Receive Date: 20180328
  Receipt Date: 20180328
  Transmission Date: 20180509
  Serious: Yes (Other)
  Sender: FDA-Public Use
  Company Number: GB-TEVA-2018-GB-875193

PATIENT
  Age: 35 Year
  Sex: Female

DRUGS (13)
  1. LEMTRADA [Suspect]
     Active Substance: ALEMTUZUMAB
     Indication: MULTIPLE SCLEROSIS
     Dosage: 12 MG, UNK
     Route: 041
  2. PARACETAMOL [Suspect]
     Active Substance: ACETAMINOPHEN
     Dosage: 1 G, AS NEEDED (UPTO 4 TIMES PER DAY AS REQUIRED)
     Route: 065
  3. COTRIMOXAZOLE [Concomitant]
     Active Substance: SULFAMETHOXAZOLE\TRIMETHOPRIM
     Dosage: ON MONDAY, WEDNESDAY AND FRIDAY
     Route: 048
  4. LANSOPRAZOLE. [Suspect]
     Active Substance: LANSOPRAZOLE
     Dosage: 15 MILLIGRAM DAILY;
     Route: 048
  5. CYCLIZINE [Concomitant]
     Active Substance: CYCLIZINE
     Dosage: UNK
  6. CYCLIZINE [Concomitant]
     Active Substance: CYCLIZINE
     Dosage: UNK
  7. CHLORPHENAMINE [Concomitant]
     Active Substance: CHLORPHENIRAMINE MALEATE
     Dosage: FREQUENCY: 30 MINUTES BEFORE LEMTRADA INFUSION
  8. LEMTRADA [Suspect]
     Active Substance: ALEMTUZUMAB
     Indication: MULTIPLE SCLEROSIS
     Dosage: 12 MG, UNK
     Route: 041
  9. CODEINE [Concomitant]
     Active Substance: CODEINE
     Dosage: UNK
  10. METHYLPREDNISOLONE. [Concomitant]
     Active Substance: METHYLPREDNISOLONE
     Dosage: UNK
  11. CODEINE [Concomitant]
     Active Substance: CODEINE
     Dosage: UNK
  12. ACYCLOVIR. [Concomitant]
     Active Substance: ACYCLOVIR
     Dosage: 200 MILLIGRAM DAILY; UNK
     Route: 048
  13. METHYLPREDNISOLONE. [Concomitant]
     Active Substance: METHYLPREDNISOLONE
     Dosage: IN 100MLS NORMAL SALINE , 1 HOUR BEFORE LEMTRADA INFUSION

REACTIONS (10)
  - Abdominal pain [Recovered/Resolved]
  - Insomnia [Unknown]
  - Band sensation [Recovered/Resolved]
  - Rash [Unknown]
  - Fatigue [Unknown]
  - Migraine [Not Recovered/Not Resolved]
  - Nausea [Recovered/Resolved]
  - Multiple sclerosis relapse [Recovered/Resolved]
  - Chest discomfort [Recovered/Resolved]
  - Dizziness [Recovered/Resolved]
